FAERS Safety Report 5487463-8 (Version None)
Quarter: 2007Q4

REPORT INFORMATION
  Report Type: 
  Country: None (occurrence: None)
  Receive Date: 20071016
  Receipt Date: 20071008
  Transmission Date: 20080405
  Serious: Yes (Other)
  Sender: FDA-Public Use
  Company Number: US-PFIZER INC-2007057008

PATIENT
  Sex: Female

DRUGS (3)
  1. XALATAN [Suspect]
     Indication: ABNORMAL SENSATION IN EYE
     Route: 047
     Dates: start: 20070301, end: 20070701
  2. XALATAN [Suspect]
     Indication: GLAUCOMA
  3. OPHTHALMOLOGICALS [Concomitant]

REACTIONS (3)
  - BLINDNESS [None]
  - EYE IRRITATION [None]
  - VISION BLURRED [None]
